FAERS Safety Report 11291587 (Version 2)
Quarter: 2017Q1

REPORT INFORMATION
  Report Type: Report from Study
  Country: KR (occurrence: KR)
  Receive Date: 20150722
  Receipt Date: 20170213
  Transmission Date: 20170428
  Serious: Yes (Death)
  Sender: FDA-Public Use
  Company Number: KR-EISAI MEDICAL RESEARCH-EC-2015-008706

PATIENT
  Sex: Female
  Weight: 47.2 kg

DRUGS (9)
  1. STILLEN [Concomitant]
  2. DOXYCYCLINE. [Concomitant]
     Active Substance: DOXYCYCLINE
  3. OMNICEF [Concomitant]
     Active Substance: CEFDINIR
  4. HALAVEN [Suspect]
     Active Substance: ERIBULIN MESYLATE
     Route: 041
     Dates: start: 20150618, end: 20150618
  5. PENIRAMIN [Concomitant]
  6. HALAVEN [Suspect]
     Active Substance: ERIBULIN MESYLATE
     Indication: BREAST CANCER METASTATIC
     Route: 041
     Dates: start: 20150420, end: 20150610
  7. ADELAVIN -9 [Concomitant]
  8. SOLETON [Concomitant]
     Active Substance: ZALTOPROFEN
  9. TARGIN [Concomitant]
     Active Substance: NALOXONE HYDROCHLORIDE\OXYCODONE HYDROCHLORIDE

REACTIONS (1)
  - Pneumonia [Fatal]

NARRATIVE: CASE EVENT DATE: 20150710
